FAERS Safety Report 4966010-0 (Version None)
Quarter: 2006Q2

REPORT INFORMATION
  Report Type: 
  Country: None (occurrence: None)
  Receive Date: 20060407
  Receipt Date: 20050504
  Transmission Date: 20061013
  Serious: Yes (Other)
  Sender: FDA-Public Use
  Company Number: GB-GLAXOSMITHKLINE-B0380061A

PATIENT
  Age: 36 Year
  Sex: Female
  Weight: 57.5 kg

DRUGS (4)
  1. MALARONE [Suspect]
     Indication: MALARIA PROPHYLAXIS
     Dosage: 1TAB PER DAY
     Route: 048
     Dates: start: 20050417, end: 20050504
  2. TYPHERIX [Concomitant]
     Route: 030
     Dates: start: 20050307, end: 20050307
  3. HAVRIX [Concomitant]
     Route: 030
     Dates: start: 20050307, end: 20050307
  4. FOLIC ACID [Concomitant]
     Route: 048
     Dates: start: 20050505

REACTIONS (2)
  - ABORTION SPONTANEOUS [None]
  - DRUG EXPOSURE DURING PREGNANCY [None]
